FAERS Safety Report 25606837 (Version 1)
Quarter: 2025Q3

REPORT INFORMATION
  Report Type: Spontaneous
  Country: EU (occurrence: EU)
  Receive Date: 20250725
  Receipt Date: 20250725
  Transmission Date: 20251020
  Serious: Yes (Death, Life-Threatening, Hospitalization, Other)
  Sender: PFIZER
  Company Number: EU-002147023-NVSC2019DE122973

PATIENT
  Age: 63 Year
  Sex: Female
  Weight: 73 kg

DRUGS (14)
  1. PIPERACILLIN SODIUM\TAZOBACTAM SODIUM [Suspect]
     Active Substance: PIPERACILLIN SODIUM\TAZOBACTAM SODIUM
     Dosage: UNK UNK, 3X/DAY
     Dates: start: 20191124, end: 20191129
  2. ELIQUIS [Suspect]
     Active Substance: APIXABAN
     Indication: Thrombosis
     Dates: start: 20200316
  3. ANASTROZOLE [Suspect]
     Active Substance: ANASTROZOLE
     Indication: Hormone receptor positive HER2 negative breast cancer
     Dosage: 1 MG, 1X/DAY
     Route: 048
     Dates: start: 20191106, end: 20191123
  4. FULVESTRANT [Suspect]
     Active Substance: FULVESTRANT
     Indication: Hormone receptor positive HER2 negative breast cancer
     Route: 030
     Dates: start: 20210106
  5. FULVESTRANT [Suspect]
     Active Substance: FULVESTRANT
     Dates: start: 20220321
  6. RIBOCICLIB [Suspect]
     Active Substance: RIBOCICLIB
     Indication: Hormone receptor positive HER2 negative breast cancer
     Dosage: 600 MG, QD (SCHEMA 21 DAYS INTAKE, 7 DAYS PAUSE)
     Route: 048
     Dates: start: 20191106, end: 20191123
  7. DEXAMETHASONE [Concomitant]
     Active Substance: DEXAMETHASONE
     Dosage: 0.5 DF, 2X/DAY
     Dates: start: 20191016
  8. POLYETHYLENE GLYCOLS [Concomitant]
     Active Substance: POLYETHYLENE GLYCOLS
     Indication: Constipation
     Dosage: 1 DF, 1X/DAY
     Route: 048
     Dates: start: 20191023
  9. ACETAMINOPHEN\CAFFEINE\PROPYPHENAZONE [Concomitant]
     Active Substance: ACETAMINOPHEN\CAFFEINE\PROPYPHENAZONE
     Indication: Pain
     Dosage: 2000 MG, 1X/DAY
     Route: 048
     Dates: start: 20191016
  10. OXYCODONE [Concomitant]
     Active Substance: OXYCODONE
     Indication: Pain
     Dosage: 10 MG, 1X/DAY
     Route: 048
     Dates: start: 20191030
  11. PALBOCICLIB [Concomitant]
     Active Substance: PALBOCICLIB
  12. PANTOPRAZOLE [Concomitant]
     Active Substance: PANTOPRAZOLE
     Indication: Prophylaxis against gastrointestinal ulcer
     Dosage: 40 MG, 1X/DAY
     Route: 048
     Dates: start: 20191016
  13. XGEVA [Concomitant]
     Active Substance: DENOSUMAB
     Route: 048
     Dates: start: 20200117
  14. .ALPHA.-TOCOPHEROL\ERGOCALCIFEROL\PHYTONADIONE\VITAMIN A [Concomitant]
     Active Substance: .ALPHA.-TOCOPHEROL\ERGOCALCIFEROL\PHYTONADIONE\VITAMIN A

REACTIONS (22)
  - Neoplasm [Fatal]
  - Acute hepatic failure [Unknown]
  - Thrombocytopenia [Not Recovered/Not Resolved]
  - Hypersensitivity [Recovered/Resolved]
  - General physical health deterioration [Recovered/Resolved]
  - Rash [Recovered/Resolved]
  - Pruritus [Recovered/Resolved]
  - Vomiting [Recovered/Resolved]
  - Diarrhoea [Recovered/Resolved]
  - Pyrexia [Recovered/Resolved]
  - Ascites [Recovering/Resolving]
  - Ovarian cancer [Recovering/Resolving]
  - Second primary malignancy [Unknown]
  - Thrombosis [Recovering/Resolving]
  - Pancytopenia [Recovered/Resolved]
  - White blood cell count decreased [Recovered/Resolved]
  - Haemoglobin decreased [Recovered/Resolved]
  - Hepatic cyst [Unknown]
  - Odynophagia [Recovered/Resolved]
  - Pleural effusion [Unknown]
  - Fatigue [Unknown]
  - Nausea [Recovered/Resolved]
